FAERS Safety Report 9308641 (Version 1)
Quarter: 2013Q2

REPORT INFORMATION
  Report Type: Spontaneous
  Country: MX (occurrence: MX)
  Receive Date: 20130524
  Receipt Date: 20130524
  Transmission Date: 20140414
  Serious: Yes (Other)
  Sender: FDA-Public Use
  Company Number: MX-BRISTOL-MYERS SQUIBB COMPANY-18896530

PATIENT
  Sex: Male

DRUGS (4)
  1. ENTECAVIR [Suspect]
     Indication: CHRONIC HEPATITIS B
     Dates: start: 2011
  2. TACROLIMUS [Suspect]
  3. PREDNISONE [Suspect]
  4. MYCOPHENOLIC ACID [Suspect]

REACTIONS (3)
  - Renal failure [Unknown]
  - Renal transplant [Unknown]
  - Creatinine renal clearance decreased [Unknown]
